FAERS Safety Report 9366950 (Version 1)
Quarter: 2013Q2

REPORT INFORMATION
  Report Type: Report from Study
  Country: JP (occurrence: JP)
  Receive Date: 20130625
  Receipt Date: 20130625
  Transmission Date: 20140414
  Serious: Yes (Hospitalization)
  Sender: FDA-Public Use
  Company Number: JP-GLAXOSMITHKLINE-B0707621A

PATIENT
  Age: 31 Year
  Sex: Female
  Weight: 55 kg

DRUGS (8)
  1. REVOLADE [Suspect]
     Indication: IDIOPATHIC THROMBOCYTOPENIC PURPURA
     Dosage: 12.5MG PER DAY
     Route: 048
     Dates: start: 20110219, end: 20110314
  2. REVOLADE [Suspect]
     Indication: IDIOPATHIC THROMBOCYTOPENIC PURPURA
     Dosage: 25MG PER DAY
     Route: 048
     Dates: start: 20110315, end: 20110317
  3. PREDONINE [Suspect]
     Indication: IDIOPATHIC THROMBOCYTOPENIC PURPURA
     Route: 048
  4. PRIMOBOLAN [Concomitant]
     Indication: IDIOPATHIC THROMBOCYTOPENIC PURPURA
     Route: 048
  5. NEORAL [Concomitant]
     Indication: IDIOPATHIC THROMBOCYTOPENIC PURPURA
     Route: 048
  6. WARFARIN [Concomitant]
     Indication: THROMBOLYSIS
     Route: 048
     Dates: start: 20110325
  7. GLYCEREB [Concomitant]
     Route: 048
     Dates: start: 20110318, end: 20110324
  8. HEPARIN SODIUM [Concomitant]
     Indication: THROMBOLYSIS
     Dates: start: 20110318, end: 20110328

REACTIONS (1)
  - Cerebral infarction [Recovering/Resolving]
